FAERS Safety Report 10857798 (Version 9)
Quarter: 2018Q4

REPORT INFORMATION
  Report Type: Spontaneous
  Country: US (occurrence: US)
  Receive Date: 20150223
  Receipt Date: 20181030
  Transmission Date: 20190204
  Serious: Yes (Hospitalization, Other)
  Sender: FDA-Public Use
  Company Number: US-DSJP-DSU-2015-105345

PATIENT

DRUGS (5)
  1. BENICAR [Suspect]
     Active Substance: OLMESARTAN MEDOXOMIL
     Indication: HYPERTENSION
     Dosage: 20 MG, QD
     Route: 048
     Dates: end: 201112
  2. BENICAR [Suspect]
     Active Substance: OLMESARTAN MEDOXOMIL
     Indication: MYOCARDIAL INFARCTION
  3. BENICAR [Suspect]
     Active Substance: OLMESARTAN MEDOXOMIL
     Indication: STROKE VOLUME DECREASED
     Dosage: 20 MG, QD
     Route: 048
     Dates: end: 201205
  4. PRILOSEC [Suspect]
     Active Substance: OMEPRAZOLE MAGNESIUM
     Dosage: UNK
  5. BENICAR [Suspect]
     Active Substance: OLMESARTAN MEDOXOMIL
     Indication: RENAL DISORDER

REACTIONS (14)
  - Colitis ischaemic [Unknown]
  - Gastrointestinal bacterial overgrowth [Unknown]
  - Gastrointestinal haemorrhage [Recovered/Resolved]
  - Duodenal ulcer [Not Recovered/Not Resolved]
  - Acute kidney injury [Unknown]
  - Syncope [Not Recovered/Not Resolved]
  - Urinary incontinence [Unknown]
  - Coeliac disease [Not Recovered/Not Resolved]
  - Sprue-like enteropathy [Recovering/Resolving]
  - Pancreatic failure [Unknown]
  - Anxiety [Unknown]
  - Pneumatosis intestinalis [Recovered/Resolved]
  - Gastrooesophageal reflux disease [Unknown]
  - Off label use [Unknown]

NARRATIVE: CASE EVENT DATE: 20090428
